FAERS Safety Report 8100469 (Version 2)
Quarter: 2012Q4

REPORT INFORMATION
  Report Type: 
  Country: BR (occurrence: BR)
  Receive Date: 20110822
  Receipt Date: 20121203
  Transmission Date: 20130627
  Serious: Yes (Other)
  Sender: FDA-Public Use
  Company Number: BR-ASTRAZENECA-2011SE48657

PATIENT
  Age: 81 Year
  Sex: Female
  Weight: 85 kg

DRUGS (8)
  1. ARIMIDEX [Suspect]
     Indication: BREAST CANCER
     Dosage: ONCE DAILY
     Route: 048
  2. CITALOPRAM MALEATE [Suspect]
     Indication: DEPRESSION
     Dosage: ONCE DAILY
     Route: 048
     Dates: start: 201104
  3. DIOVAN HCT [Concomitant]
     Indication: HYPERTENSION
     Dosage: 160/25 MG
     Route: 048
  4. FRONTAL [Concomitant]
     Indication: DEPRESSION
     Route: 048
  5. UNKNOWN [Concomitant]
     Indication: HYPERCHOLESTEROLAEMIA
     Route: 048
  6. SIMVASTATIN [Concomitant]
     Indication: BLOOD CHOLESTEROL INCREASED
     Route: 048
  7. RIVOTRIL [Concomitant]
     Indication: DEPRESSION
     Route: 048
  8. PAROXETINE HYDROCHLORIDE [Concomitant]
     Indication: DEPRESSION
     Route: 048

REACTIONS (12)
  - Suicidal ideation [Not Recovered/Not Resolved]
  - Depression [Not Recovered/Not Resolved]
  - Dyspnoea [Not Recovered/Not Resolved]
  - Weight increased [Not Recovered/Not Resolved]
  - Hyperglycaemia [Not Recovered/Not Resolved]
  - Ocular hyperaemia [Not Recovered/Not Resolved]
  - Platelet count decreased [Not Recovered/Not Resolved]
  - Blood cholesterol increased [Not Recovered/Not Resolved]
  - Breast disorder [Unknown]
  - Pulmonary oedema [Not Recovered/Not Resolved]
  - Blood triglycerides increased [Not Recovered/Not Resolved]
  - Fatigue [Not Recovered/Not Resolved]
